FAERS Safety Report 26164669 (Version 1)
Quarter: 2025Q4

REPORT INFORMATION
  Report Type: Spontaneous
  Country: US (occurrence: US)
  Receive Date: 20251216
  Receipt Date: 20251216
  Transmission Date: 20260117
  Serious: No
  Sender: SANOFI AVENTIS
  Company Number: US-SA-2025SA371770

PATIENT
  Age: 57 Year
  Sex: Male

DRUGS (1)
  1. DUPIXENT [Suspect]
     Active Substance: DUPILUMAB
     Dosage: 300 MG, QOW
     Route: 058

REACTIONS (7)
  - Influenza like illness [Unknown]
  - Pain [Unknown]
  - Dandruff [Unknown]
  - Sensitive skin [Unknown]
  - Erythema [Unknown]
  - Pain of skin [Unknown]
  - Hypersensitivity [Unknown]
